FAERS Safety Report 8074116-5 (Version None)
Quarter: 2011Q4

REPORT INFORMATION
  Report Type: 
  Country: None (occurrence: None)
  Receive Date: 20111221
  Receipt Date: 20110315
  Transmission Date: 20120403
  Serious: Yes (Death)
  Sender: FDA-Public Use
  Company Number: PHHY2011US21605

PATIENT
  Age: 79 Year
  Sex: Male

DRUGS (3)
  1. DESFERAL [Suspect]
  2. EXJADE [Suspect]
     Indication: HAEMATOPOIETIC NEOPLASM
     Dosage: 1000 MG, QD, ORAL
     Route: 048
     Dates: start: 20090203, end: 20101115
  3. EXJADE [Suspect]
     Indication: LYMPHATIC SYSTEM NEOPLASM
     Dosage: 1000 MG, QD, ORAL
     Route: 048
     Dates: start: 20090203, end: 20101115

REACTIONS (1)
  - NEOPLASM MALIGNANT [None]
